FAERS Safety Report 9199754 (Version 1)
Quarter: 2013Q1

REPORT INFORMATION
  Report Type: Spontaneous
  Country: US (occurrence: None)
  Receive Date: 20130326
  Receipt Date: 20130326
  Transmission Date: 20140127
  Serious: Yes (Other)
  Sender: FDA-Public Use
  Company Number: 13-01183

PATIENT
  Sex: Female

DRUGS (1)
  1. ASTHMANEFRIN [Suspect]
     Indication: ASTHMA
     Dosage: 3-20 INHALATIONS
     Route: 055
     Dates: start: 201303

REACTIONS (3)
  - Productive cough [None]
  - Sputum discoloured [None]
  - Malaise [None]
